FAERS Safety Report 17578685 (Version 2)
Quarter: 2020Q2

REPORT INFORMATION
  Report Type: Report from Study
  Country: IT (occurrence: IT)
  Receive Date: 20200324
  Receipt Date: 20200509
  Transmission Date: 20200713
  Serious: Yes (Other)
  Sender: FDA-Public Use
  Company Number: IT-TEVA-2020-IT-1208876

PATIENT
  Age: 42 Year
  Sex: Male

DRUGS (1)
  1. PREDNISONE. [Suspect]
     Active Substance: PREDNISONE
     Indication: GLOMERULONEPHRITIS MEMBRANOUS
     Dosage: FOR SCHEDULED TOTAL PERIOD OF LESS THAN 12-16 WEEKS WITH GRADUAL DECREASE IN 8 WEEKS
     Route: 065

REACTIONS (1)
  - Pneumonia [Unknown]
